FAERS Safety Report 6711289-8 (Version None)
Quarter: 2010Q2

REPORT INFORMATION
  Report Type: 
  Country: None (occurrence: None)
  Receive Date: 20100505
  Receipt Date: 20100426
  Transmission Date: 20101027
  Serious: Yes (Other)
  Sender: FDA-Public Use
  Company Number: US-BRISTOL-MYERS SQUIBB COMPANY-15089543

PATIENT
  Age: 43 Year
  Sex: Male

DRUGS (1)
  1. TRIAMCINOLONE [Suspect]
     Indication: MACULAR OEDEMA
     Dosage: INTRAVETREAL INJ, 1 DOSAGES FORM = 20MG/0.1ML.
     Route: 031

REACTIONS (2)
  - CYTOMEGALOVIRUS CHORIORETINITIS [None]
  - VISUAL ACUITY REDUCED [None]
